FAERS Safety Report 6188490-8 (Version None)
Quarter: 2009Q2

REPORT INFORMATION
  Report Type: 
  Country: None (occurrence: None)
  Receive Date: 20090513
  Receipt Date: 20090513
  Transmission Date: 20091009
  Serious: Yes (Other)
  Sender: FDA-Public Use
  Company Number: US-PFIZER INC-2009182059

PATIENT
  Sex: Male
  Weight: 72.574 kg

DRUGS (3)
  1. DETROL LA [Suspect]
     Indication: BLADDER DISORDER
     Dates: start: 20071101, end: 20071230
  2. HYTRIN [Concomitant]
  3. PROSCAR [Concomitant]

REACTIONS (2)
  - BLADDER OBSTRUCTION [None]
  - HYPERTONIC BLADDER [None]
